FAERS Safety Report 15785834 (Version 1)
Quarter: 2019Q1

REPORT INFORMATION
  Report Type: Spontaneous
  Country: US (occurrence: US)
  Receive Date: 20190101
  Receipt Date: 20190101
  Transmission Date: 20190417
  Serious: Yes (Disabling, Other)
  Sender: FDA-Public Use
  Company Number: None

PATIENT
  Age: 70 Year
  Sex: Female
  Weight: 67.5 kg

DRUGS (12)
  1. PROPRANOLOL [Concomitant]
     Active Substance: PROPRANOLOL HYDROCHLORIDE
  2. VITAMIN B COMPLEX [Concomitant]
     Active Substance: CYANOCOBALAMIN\DEXPANTHENOL\NIACINAMIDE\PYRIDOXINE HYDROCHLORIDE\RIBOFLAVIN 5^-PHOSPHATE SODIUM\THIAMINE HYDROCHLORIDE\VITAMIN B COMPLEX
  3. MULTIVITAMIN [Concomitant]
     Active Substance: VITAMINS
  4. OMEGA-3 ACIDS [Concomitant]
     Active Substance: OMEGA-3 FATTY ACIDS
  5. PROBIOTIC [Concomitant]
     Active Substance: PROBIOTICS NOS
  6. KEPPRA [Concomitant]
     Active Substance: LEVETIRACETAM
  7. VIMPAT [Concomitant]
     Active Substance: LACOSAMIDE
  8. FYCOMPA [Suspect]
     Active Substance: PERAMPANEL
     Indication: EPILEPSY
     Dosage: ?          QUANTITY:1 TABLET(S);?
     Route: 048
     Dates: start: 20170217, end: 20170322
  9. LATANOPROST. [Concomitant]
     Active Substance: LATANOPROST
  10. VITAMIN D3 [Concomitant]
     Active Substance: CHOLECALCIFEROL
  11. BIOTIN [Concomitant]
     Active Substance: BIOTIN
  12. ASPIRIN. [Concomitant]
     Active Substance: ASPIRIN

REACTIONS (9)
  - Delirium [None]
  - Hallucination, visual [None]
  - Hallucination, auditory [None]
  - Acute psychosis [None]
  - Abnormal behaviour [None]
  - Cognitive disorder [None]
  - Memory impairment [None]
  - Poor personal hygiene [None]
  - Confusional state [None]

NARRATIVE: CASE EVENT DATE: 20170217
